FAERS Safety Report 5895163-5 (Version None)
Quarter: 2008Q3

REPORT INFORMATION
  Report Type: 
  Country: None (occurrence: None)
  Receive Date: 20080924
  Receipt Date: 20080912
  Transmission Date: 20090109
  Serious: Yes (Other)
  Sender: FDA-Public Use
  Company Number: BR-PFIZER INC-2008078108

PATIENT
  Sex: Male
  Weight: 71 kg

DRUGS (4)
  1. CHANTIX [Suspect]
     Indication: TOBACCO USER
     Route: 048
     Dates: start: 20080909
  2. LOSARTAN POTASSIUM [Concomitant]
  3. AMIODARONE HCL [Concomitant]
  4. ALPRAZOLAM [Concomitant]

REACTIONS (2)
  - HYPERTENSION [None]
  - MEDICATION ERROR [None]
